FAERS Safety Report 11184532 (Version 1)
Quarter: 2015Q2

REPORT INFORMATION
  Report Type: Spontaneous
  Country: JP (occurrence: JP)
  Receive Date: 20150612
  Receipt Date: 20150612
  Transmission Date: 20150821
  Serious: Yes (Death, Life-Threatening, Other)
  Sender: FDA-Public Use
  Company Number: JP-ELI_LILLY_AND_COMPANY-JP201506003357

PATIENT
  Age: 71 Year
  Sex: Male

DRUGS (4)
  1. GEMZAR [Suspect]
     Active Substance: GEMCITABINE HYDROCHLORIDE
     Indication: PANCREATIC CARCINOMA STAGE IV
     Dosage: 800 MG/M2, UNK
     Route: 042
     Dates: start: 20140819, end: 20140819
  2. XARELTO [Suspect]
     Active Substance: RIVAROXABAN
     Indication: CEREBRAL INFARCTION
     Route: 048
  3. TARCEVA [Suspect]
     Active Substance: ERLOTINIB HYDROCHLORIDE
     Indication: PANCREATIC CARCINOMA STAGE IV
     Dosage: 100 MG, QD
     Route: 048
     Dates: start: 20140819, end: 20140826
  4. OPSO [Concomitant]
     Active Substance: MORPHINE HYDROCHLORIDE
     Indication: PANCREATIC CARCINOMA
     Dosage: 40 MG, DAILY
     Route: 048
     Dates: start: 20140820, end: 20140903

REACTIONS (4)
  - Malignant neoplasm progression [Fatal]
  - Cerebral infarction [Not Recovered/Not Resolved]
  - Platelet count decreased [Recovering/Resolving]
  - Drug eruption [Not Recovered/Not Resolved]

NARRATIVE: CASE EVENT DATE: 20140821
